FAERS Safety Report 4393155-9 (Version None)
Quarter: 2004Q3

REPORT INFORMATION
  Report Type: 
  Country: None (occurrence: None)
  Receive Date: 20040702
  Receipt Date: 20040430
  Transmission Date: 20050211
  Serious: Yes (Other)
  Sender: FDA-Public Use
  Company Number: 2004UW07301

PATIENT
  Age: 70 Year
  Sex: Male
  Weight: 72.5755 kg

DRUGS (2)
  1. CRESTOR [Suspect]
     Dosage: 10 MG DAILY PO
     Route: 048
     Dates: start: 20040201, end: 20040401
  2. LIPITOR [Concomitant]

REACTIONS (5)
  - ABDOMINAL PAIN [None]
  - ABDOMINAL RIGIDITY [None]
  - BLOOD CHOLESTEROL INCREASED [None]
  - BLOOD TRIGLYCERIDES INCREASED [None]
  - LOW DENSITY LIPOPROTEIN INCREASED [None]
